FAERS Safety Report 22628995 (Version 1)
Quarter: 2023Q2

REPORT INFORMATION
  Report Type: Report from Study
  Country: CA (occurrence: CA)
  Receive Date: 20230622
  Receipt Date: 20230622
  Transmission Date: 20230722
  Serious: Yes (Other)
  Sender: FDA-Public Use
  Company Number: CA-BEH-2023160202

PATIENT
  Age: 59 Year
  Sex: Female
  Weight: 49.9 kg

DRUGS (4)
  1. HIZENTRA [Suspect]
     Active Substance: HUMAN IMMUNOGLOBULIN G
     Indication: Primary immunodeficiency syndrome
     Dosage: 12 GRAM, QOW
     Route: 065
     Dates: start: 20190419
  2. METHADONE [Concomitant]
     Active Substance: METHADONE HYDROCHLORIDE
  3. ZOPICLONE [Concomitant]
     Active Substance: ZOPICLONE
  4. ATIVAN [Concomitant]
     Active Substance: LORAZEPAM

REACTIONS (3)
  - Gastritis [Unknown]
  - Disability [Unknown]
  - Mobility decreased [Unknown]
